FAERS Safety Report 10085001 (Version 2)
Quarter: 2014Q2

REPORT INFORMATION
  Report Type: Spontaneous
  Country: US (occurrence: US)
  Receive Date: 20140417
  Receipt Date: 20140519
  Transmission Date: 20141212
  Serious: Yes (Hospitalization)
  Sender: FDA-Public Use
  Company Number: US-OTSUKA-US-2014-10722

PATIENT
  Sex: Male

DRUGS (2)
  1. ABILIFY MAINTENA [Suspect]
     Indication: SCHIZOPHRENIA
     Dosage: 400 MG MILLIGRAM(S), Q4WK
     Route: 030
  2. INVEGA SUSTENNA [Concomitant]
     Indication: SCHIZOPHRENIA
     Dosage: 234 MG MILLIGRAM(S), Q2WK
     Route: 065

REACTIONS (3)
  - Aggression [Unknown]
  - Hallucination [Unknown]
  - Paranoia [Unknown]
